FAERS Safety Report 4989844-5 (Version None)
Quarter: 2006Q2

REPORT INFORMATION
  Report Type: 
  Country: None (occurrence: None)
  Receive Date: 20060428
  Receipt Date: 20060419
  Transmission Date: 20061013
  Serious: Yes (Hospitalization)
  Sender: FDA-Public Use
  Company Number: 2006053046

PATIENT
  Age: 33 Year
  Sex: Female
  Weight: 80.7403 kg

DRUGS (3)
  1. BENYLIN DM-E EXTRA STRENGTH (DEXTROMETHORPHAN, GUAIFENESIN) [Suspect]
     Indication: COUGH
     Dosage: 2 TEASPOONS EVERY 6 HOURS, ORAL
     Route: 048
     Dates: start: 20060415, end: 20060416
  2. LEVOTHYROXINE SODIUM [Concomitant]
  3. FLUTICASONE PROPIONATE [Concomitant]

REACTIONS (2)
  - ASTHMA [None]
  - SELF-MEDICATION [None]
